FAERS Safety Report 6032921-0 (Version None)
Quarter: 2009Q1

REPORT INFORMATION
  Report Type: 
  Country: None (occurrence: None)
  Receive Date: 20090107
  Receipt Date: 20090107
  Transmission Date: 20090719
  Serious: Yes (Other)
  Sender: FDA-Public Use
  Company Number: None

PATIENT
  Age: 71 Year
  Sex: Male
  Weight: 104.3273 kg

DRUGS (2)
  1. CRESTOR [Suspect]
     Indication: LOW DENSITY LIPOPROTEIN INCREASED
     Dosage: 20MG 2 TIMES/WEEK PO
     Route: 048
  2. TICOR [Concomitant]

REACTIONS (2)
  - MUSCLE ATROPHY [None]
  - MYALGIA [None]
